FAERS Safety Report 6747171-X (Version None)
Quarter: 2010Q2

REPORT INFORMATION
  Report Type: 
  Country: None (occurrence: None)
  Receive Date: 20100528
  Receipt Date: 20100519
  Transmission Date: 20101027
  Serious: Yes (Other)
  Sender: FDA-Public Use
  Company Number: JP-JNJFOC-20100207216

PATIENT
  Sex: Female
  Weight: 40 kg

DRUGS (17)
  1. REMICADE [Suspect]
     Indication: RHEUMATOID ARTHRITIS
     Dosage: 6TH INFUSION
     Route: 042
  2. REMICADE [Suspect]
     Route: 042
  3. REMICADE [Suspect]
     Route: 042
  4. REMICADE [Suspect]
     Route: 042
  5. REMICADE [Suspect]
     Route: 042
  6. REMICADE [Suspect]
     Dosage: 5TH INFUSION
     Route: 042
  7. RHEUMATREX [Suspect]
     Indication: RHEUMATOID ARTHRITIS
     Route: 048
  8. RHEUMATREX [Suspect]
     Route: 048
  9. PREDNISOLONE [Suspect]
     Indication: DRUG USE FOR UNKNOWN INDICATION
     Dosage: 10-30 MG
     Route: 048
  10. RHEUMATREX [Concomitant]
     Route: 048
  11. RHEUMATREX [Concomitant]
     Route: 048
  12. DISEASE MODIFYING ANTIRHEUMATIC DRUGS [Concomitant]
  13. FOLIAMIN [Concomitant]
     Route: 048
  14. ONEALFA [Concomitant]
     Dosage: 0.5 ^RG^
     Route: 048
  15. FOSAMAC [Concomitant]
     Route: 048
  16. GASTER D [Concomitant]
     Route: 048
  17. ENBREL [Concomitant]
     Indication: RHEUMATOID ARTHRITIS
     Route: 058

REACTIONS (1)
  - NOCARDIOSIS [None]
